FAERS Safety Report 5808158-4 (Version None)
Quarter: 2008Q3

REPORT INFORMATION
  Report Type: 
  Country: None (occurrence: None)
  Receive Date: 20080709
  Receipt Date: 20080702
  Transmission Date: 20090109
  Serious: Yes (Other)
  Sender: FDA-Public Use
  Company Number: 163-21880-08051109

PATIENT
  Age: 43 Year
  Sex: Female

DRUGS (2)
  1. REVLIMID [Suspect]
     Indication: MULTIPLE MYELOMA
     Dosage: 15 MG, DAILY X21 DAYS, ORAL; 25 MG, DAILY FOR 21 DAYS, ORAL
     Route: 048
     Dates: start: 20080414, end: 20080516
  2. REVLIMID [Suspect]
     Indication: MULTIPLE MYELOMA
     Dosage: 15 MG, DAILY X21 DAYS, ORAL; 25 MG, DAILY FOR 21 DAYS, ORAL
     Route: 048
     Dates: start: 20080601

REACTIONS (1)
  - URINE HUMAN CHORIONIC GONADOTROPIN INCREASED [None]
